FAERS Safety Report 9450618 (Version 1)
Quarter: 2013Q3

REPORT INFORMATION
  Report Type: Spontaneous
  Country: US (occurrence: US)
  Receive Date: 20130809
  Receipt Date: 20130809
  Transmission Date: 20140515
  Serious: Yes (Other)
  Sender: FDA-Public Use
  Company Number: US-BAYER-2013-096308

PATIENT
  Age: 38 Year
  Sex: Female

DRUGS (6)
  1. YAZ [Suspect]
  2. GIANVI [Suspect]
  3. AMBIEN [Concomitant]
  4. EFFEXOR [Concomitant]
  5. SYNTHROID [Concomitant]
  6. ATIVAN [Concomitant]

REACTIONS (1)
  - Deep vein thrombosis [None]
